FAERS Safety Report 24806731 (Version 1)
Quarter: 2025Q1

REPORT INFORMATION
  Report Type: Spontaneous
  Country: GB (occurrence: GB)
  Receive Date: 20250104
  Receipt Date: 20250104
  Transmission Date: 20250408
  Serious: Yes (Other)
  Sender: AUROBINDO
  Company Number: GB-MHRA-MED-202412201600429590-GHQVT

PATIENT
  Age: 47 Year
  Sex: Female

DRUGS (1)
  1. ARIPIPRAZOLE [Suspect]
     Active Substance: ARIPIPRAZOLE
     Indication: Adverse drug reaction
     Route: 065

REACTIONS (4)
  - Brain fog [Recovered/Resolved]
  - Insomnia [Recovered/Resolved]
  - Lacrimation increased [Recovered/Resolved]
  - Disturbance in attention [Recovered/Resolved]
